FAERS Safety Report 20385726 (Version 1)
Quarter: 2022Q1

REPORT INFORMATION
  Report Type: Spontaneous
  Country: US (occurrence: US)
  Receive Date: 20220127
  Receipt Date: 20220127
  Transmission Date: 20220424
  Serious: No
  Sender: FDA-Public Use
  Company Number: US-PERRIGO-21US024522

PATIENT
  Sex: Female

DRUGS (1)
  1. OMEPRAZOLE [Suspect]
     Active Substance: OMEPRAZOLE
     Indication: Product used for unknown indication
     Dosage: UNK, QD
     Route: 050
     Dates: start: 20210829

REACTIONS (3)
  - Abdominal distension [Unknown]
  - Flatulence [Unknown]
  - Expired product administered [Unknown]

NARRATIVE: CASE EVENT DATE: 20210801
